FAERS Safety Report 7961914-9 (Version None)
Quarter: 2011Q4

REPORT INFORMATION
  Report Type: 
  Country: None (occurrence: None)
  Receive Date: 20111207
  Receipt Date: 20111206
  Transmission Date: 20120403
  Serious: Yes (Other)
  Sender: FDA-Public Use
  Company Number: GB-ROCHE-1019215

PATIENT
  Age: 53 Year
  Sex: Female
  Weight: 93.4 kg

DRUGS (10)
  1. SULFASALAZINE [Concomitant]
  2. SIMVASTATIN [Concomitant]
  3. ADCAL-D3 [Concomitant]
  4. BUTRANS [Concomitant]
  5. ACTEMRA [Suspect]
     Indication: PRODUCT USED FOR UNKNOWN INDICATION
     Route: 042
     Dates: start: 20081120
  6. HYDROXYCHLOROQUINE [Concomitant]
  7. ALENDRONIC ACID [Concomitant]
  8. CYCLOSPORINE [Concomitant]
  9. OMEPRAZOLE [Concomitant]
  10. PREDNISOLONE [Concomitant]

REACTIONS (1)
  - SINUS TACHYCARDIA [None]
